FAERS Safety Report 5278171-7 (Version None)
Quarter: 2007Q1

REPORT INFORMATION
  Report Type: 
  Country: None (occurrence: None)
  Receive Date: 20061213
  Receipt Date: 20060313
  Transmission Date: 20070707
  Serious: Yes (Disabling)
  Sender: FDA-Public Use
  Company Number: 2006UW04349

PATIENT
  Sex: Female

DRUGS (1)
  1. SEROQUEL [Suspect]

REACTIONS (1)
  - DIABETES MELLITUS [None]
